FAERS Safety Report 6710423-3 (Version None)
Quarter: 2010Q2

REPORT INFORMATION
  Report Type: 
  Country: None (occurrence: None)
  Receive Date: 20100504
  Receipt Date: 20100422
  Transmission Date: 20101027
  Serious: No
  Sender: FDA-Public Use
  Company Number: US-B.I. PHARMACEUTICALS,INC./RIDGEFIELD-2010-BP-04702BP

PATIENT
  Sex: Female

DRUGS (17)
  1. ATROVENT HFA [Suspect]
     Indication: ASTHMA
     Dosage: 3 PUF
     Route: 055
     Dates: start: 20100201
  2. ATROVENT HFA [Suspect]
     Indication: CHRONIC OBSTRUCTIVE PULMONARY DISEASE
  3. ALENDRONATE [Concomitant]
     Indication: OSTEOPOROSIS
  4. PROVENTIL [Concomitant]
     Indication: ASTHMA
  5. PROVENTIL [Concomitant]
     Indication: CHRONIC OBSTRUCTIVE PULMONARY DISEASE
  6. SYMBICORT [Concomitant]
     Indication: ASTHMA
  7. SYMBICORT [Concomitant]
     Indication: CHRONIC OBSTRUCTIVE PULMONARY DISEASE
  8. NEXIUM [Concomitant]
     Indication: GASTROOESOPHAGEAL REFLUX DISEASE
  9. NAPROSYN [Concomitant]
     Indication: TOOTHACHE
  10. MELOXICAM [Concomitant]
     Indication: ARTHRITIS
  11. FUROSEMIDE [Concomitant]
     Indication: OEDEMA
  12. HYDROCODONE BITARTRATE [Concomitant]
     Indication: BACK PAIN
  13. HYDROCODONE BITARTRATE [Concomitant]
     Indication: MULTIPLE SCLEROSIS
  14. BACLOFEN [Concomitant]
     Indication: MUSCLE SPASMS
  15. LORAZEPAM [Concomitant]
     Indication: ANXIETY
  16. AMANTADINE HCL [Concomitant]
     Indication: MUSCLE SPASMS
  17. CELEXA [Concomitant]
     Indication: DEPRESSION

REACTIONS (1)
  - SPINAL DEFORMITY [None]
